FAERS Safety Report 25482506 (Version 1)
Quarter: 2025Q2

REPORT INFORMATION
  Report Type: Spontaneous
  Country: US (occurrence: US)
  Receive Date: 20250626
  Receipt Date: 20250626
  Transmission Date: 20250717
  Serious: No
  Sender: ROCHE
  Company Number: US-ROCHE-10000314184

PATIENT
  Age: 42 Year
  Sex: Female
  Weight: 77.11 kg

DRUGS (2)
  1. XOLAIR [Suspect]
     Active Substance: OMALIZUMAB
     Indication: Chronic spontaneous urticaria
     Dosage: THREE 150MG SYRINGES- 450 .?LAST DOSE OF XOLAIR WAS TAKEN ON 11-MAY-2025 OR 12-MAY-2025.
     Route: 058
  2. XOLAIR [Suspect]
     Active Substance: OMALIZUMAB

REACTIONS (6)
  - Product dose omission issue [Unknown]
  - Needle issue [Unknown]
  - Product complaint [Unknown]
  - Accidental exposure to product [Unknown]
  - Product closure issue [Unknown]
  - No adverse event [Unknown]

NARRATIVE: CASE EVENT DATE: 20250613
